FAERS Safety Report 9518269 (Version 1)
Quarter: 2013Q3

REPORT INFORMATION
  Report Type: Spontaneous
  Country: AU (occurrence: None)
  Receive Date: 20130910
  Receipt Date: 20130910
  Transmission Date: 20140515
  Serious: Yes (Other)
  Sender: FDA-Public Use
  Company Number: USA/AUS/13/0034369

PATIENT
  Age: 45 Year
  Sex: Male

DRUGS (2)
  1. RISPERIDONE (RISPERIDONE) [Suspect]
     Indication: PSYCHOTIC DISORDER
     Route: 048
  2. PALIPERIDONE [Suspect]
     Indication: PSYCHOTIC DISORDER
     Dosage: UNKNOWN, INTRAVENOUS (NOT OTHERWISE SPECIFIED)
     Route: 042

REACTIONS (3)
  - Neutropenia [None]
  - Lymphopenia [None]
  - Blood disorder [None]
